FAERS Safety Report 8178273-1 (Version None)
Quarter: 2012Q1

REPORT INFORMATION
  Report Type: 
  Country: None (occurrence: None)
  Receive Date: 20120301
  Receipt Date: 20120224
  Transmission Date: 20120608
  Serious: Yes (Other)
  Sender: FDA-Public Use
  Company Number: US-BAXTER-2012BH005393

PATIENT
  Sex: Female

DRUGS (1)
  1. GAMMAGARD LIQUID [Suspect]
     Indication: IMMUNE SYSTEM DISORDER
     Route: 042

REACTIONS (5)
  - CHILLS [None]
  - MALAISE [None]
  - FEELING ABNORMAL [None]
  - INFLUENZA [None]
  - NASOPHARYNGITIS [None]
